FAERS Safety Report 16321680 (Version 1)
Quarter: 2019Q2

REPORT INFORMATION
  Report Type: Spontaneous
  Country: JP (occurrence: JP)
  Receive Date: 20190516
  Receipt Date: 20190516
  Transmission Date: 20190711
  Serious: Yes (Other)
  Sender: FDA-Public Use
  Company Number: JP-JNJFOC-20190519956

PATIENT
  Age: 44 Year
  Sex: Male

DRUGS (1)
  1. XARELTO [Suspect]
     Active Substance: RIVAROXABAN
     Indication: DEEP VEIN THROMBOSIS
     Route: 048

REACTIONS (5)
  - Oedema peripheral [Unknown]
  - Pain in extremity [Recovered/Resolved]
  - Deep vein thrombosis [Recovering/Resolving]
  - Venous occlusion [Unknown]
  - Peripheral swelling [Recovered/Resolved]
